FAERS Safety Report 9155577 (Version 2)
Quarter: 2013Q2

REPORT INFORMATION
  Report Type: Report from Study
  Country: DE (occurrence: DE)
  Receive Date: 20130311
  Receipt Date: 20130515
  Transmission Date: 20140414
  Serious: Yes (Hospitalization)
  Sender: FDA-Public Use
  Company Number: DE-BAXTER-2013BAX008199

PATIENT
  Sex: Female

DRUGS (14)
  1. ENDOXAN 1G [Suspect]
     Indication: B-CELL LYMPHOMA
     Route: 042
     Dates: start: 20121013, end: 20121013
  2. METHOTREXATE DISODIUM [Suspect]
     Indication: B-CELL LYMPHOMA
     Route: 042
     Dates: start: 20120714, end: 20120714
  3. CALCIUM FOLINATE [Suspect]
     Indication: B-CELL LYMPHOMA
     Route: 058
     Dates: start: 20120715, end: 20120715
  4. CALCIUM FOLINATE [Suspect]
     Route: 058
     Dates: start: 20120716, end: 20120716
  5. VINCRISTINE [Suspect]
     Indication: B-CELL LYMPHOMA
     Route: 042
     Dates: start: 20120915, end: 20120915
  6. DOXORUBICIN [Suspect]
     Indication: B-CELL LYMPHOMA
     Route: 042
     Dates: start: 20121013, end: 20121013
  7. PREDNISOLONE [Suspect]
     Indication: B-CELL LYMPHOMA
     Route: 048
     Dates: start: 20121013, end: 20121017
  8. PEGFILGRASTIM [Suspect]
     Indication: B-CELL LYMPHOMA
     Route: 058
     Dates: start: 20121016, end: 20121016
  9. RITUXIMAB [Suspect]
     Indication: B-CELL LYMPHOMA
     Route: 042
     Dates: start: 20121102, end: 20121102
  10. PREGABALIN [Concomitant]
     Indication: NEUROPATHY PERIPHERAL
     Route: 048
     Dates: start: 20120918
  11. METOPROLOL [Concomitant]
     Indication: ARRHYTHMIA
     Route: 048
     Dates: start: 20121116
  12. DIGITOXIN [Concomitant]
     Indication: ATRIAL FIBRILLATION
     Route: 048
     Dates: start: 20121119
  13. POTASSIUM CHLORIDE [Concomitant]
     Indication: PROPHYLAXIS
     Route: 048
     Dates: start: 20121115
  14. ENOXAPARIN SODIUM [Concomitant]
     Indication: THROMBOSIS PROPHYLAXIS
     Route: 065
     Dates: start: 20120615

REACTIONS (1)
  - Gamma-glutamyltransferase increased [Recovered/Resolved]
